FAERS Safety Report 8419010-2 (Version None)
Quarter: 2012Q2

REPORT INFORMATION
  Report Type: 
  Country: None (occurrence: None)
  Receive Date: 20120530
  Receipt Date: 20120521
  Transmission Date: 20120825
  Serious: Yes (Other)
  Sender: FDA-Public Use
  Company Number: AUR-APL-2012-02377

PATIENT
  Age: 46 Year
  Sex: Female

DRUGS (1)
  1. CITALOPRAM HYDROBROMIDE [Suspect]
     Indication: DEPRESSION
     Dosage: (4 DOSAGE FORMS, 1 D), ORAL
     Route: 048
     Dates: start: 20120417, end: 20120417

REACTIONS (6)
  - PRESYNCOPE [None]
  - ABDOMINAL PAIN [None]
  - DIZZINESS [None]
  - PALPITATIONS [None]
  - HYPOKINESIA [None]
  - TACHYCARDIA [None]
